FAERS Safety Report 5516614-1 (Version None)
Quarter: 2007Q4

REPORT INFORMATION
  Report Type: 
  Country: None (occurrence: None)
  Receive Date: 20071114
  Receipt Date: 20070327
  Transmission Date: 20080405
  Serious: No
  Sender: FDA-Public Use
  Company Number: A0644612A

PATIENT
  Age: 37 Year
  Sex: Female

DRUGS (1)
  1. COMMIT [Suspect]
     Dates: start: 20070326, end: 20070326

REACTIONS (2)
  - NAUSEA [None]
  - STOMACH DISCOMFORT [None]
